FAERS Safety Report 5225733-9 (Version None)
Quarter: 2007Q1

REPORT INFORMATION
  Report Type: 
  Country: None (occurrence: None)
  Receive Date: 20070131
  Receipt Date: 20070131
  Transmission Date: 20070707
  Serious: Yes (Hospitalization)
  Sender: FDA-Public Use
  Company Number: None

PATIENT
  Age: 76 Year
  Sex: Female
  Weight: 71.6683 kg

DRUGS (10)
  1. TARCEVA [Suspect]
     Indication: BREAST CANCER METASTATIC
     Dosage: 150 MG DAILY
     Dates: start: 20060726
  2. LETROZOLE [Suspect]
     Indication: BREAST CANCER METASTATIC
     Dosage: 2.5 MG DAILY
     Dates: start: 20060726
  3. NEXIUM [Concomitant]
  4. ZIAC [Concomitant]
  5. COUMADIN [Concomitant]
  6. DECADRON [Concomitant]
  7. ZOMETA [Concomitant]
  8. PRAVACHOL [Concomitant]
  9. ACTONEL [Concomitant]
  10. CRYSTALLINE VIT B12 INJ [Concomitant]

REACTIONS (6)
  - BLISTER [None]
  - CELLULITIS [None]
  - DEEP VEIN THROMBOSIS [None]
  - ERYSIPELAS [None]
  - OEDEMA PERIPHERAL [None]
  - PAIN IN EXTREMITY [None]
